FAERS Safety Report 8695603 (Version 2)
Quarter: 2015Q1

REPORT INFORMATION
  Report Type: Report from Study
  Country: US (occurrence: US)
  Receive Date: 20120731
  Receipt Date: 20150209
  Transmission Date: 20150721
  Serious: Yes (Hospitalization)
  Sender: FDA-Public Use
  Company Number: US-ROCHE-1092969

PATIENT
  Age: 42 Year
  Sex: Female
  Weight: 57.2 kg

DRUGS (15)
  1. PREDNISONE. [Concomitant]
     Active Substance: PREDNISONE
     Indication: PRODUCT USED FOR UNKNOWN INDICATION
     Dosage: 10 TO 40MGS FOR ABOUT A MONTH AT A TIME
     Route: 065
  2. TYLENOL [Concomitant]
     Active Substance: ACETAMINOPHEN
     Dosage: AS  NEEDED
     Route: 048
  3. TESSALON [Concomitant]
     Active Substance: BENZONATATE
     Route: 048
  4. MEDROL [Concomitant]
     Active Substance: METHYLPREDNISOLONE
  5. BRETHINE [Concomitant]
     Active Substance: TERBUTALINE SULFATE
     Route: 065
  6. SINGULAIR [Concomitant]
     Active Substance: MONTELUKAST SODIUM
     Route: 048
  7. TUSSINEX (UNK INGREDIENTS) [Concomitant]
     Dosage: 1 TEASPOON
     Route: 048
  8. XOPENEX [Concomitant]
     Active Substance: LEVALBUTEROL HYDROCHLORIDE
     Route: 045
  9. PREVACID [Concomitant]
     Active Substance: LANSOPRAZOLE
     Route: 065
  10. SOLU-MEDROL [Concomitant]
     Active Substance: METHYLPREDNISOLONE SODIUM SUCCINATE
     Route: 065
  11. AMBIEN [Concomitant]
     Active Substance: ZOLPIDEM TARTRATE
     Dosage: EVERY BEDTIME AS NEEDED.
     Route: 048
  12. ATROVENT [Concomitant]
     Active Substance: IPRATROPIUM BROMIDE
     Route: 065
  13. XOLAIR [Suspect]
     Active Substance: OMALIZUMAB
     Indication: STATUS ASTHMATICUS
     Route: 058
     Dates: start: 200502
  14. ZYRTEC [Concomitant]
     Active Substance: CETIRIZINE HYDROCHLORIDE
     Route: 048
  15. LEVAQUIN [Concomitant]
     Active Substance: LEVOFLOXACIN
     Route: 042

REACTIONS (15)
  - Bronchospasm [Unknown]
  - Obstructive airways disorder [Unknown]
  - Mood swings [Unknown]
  - Dyspnoea [Unknown]
  - Weight increased [Unknown]
  - Increased appetite [Unknown]
  - Sinusitis [Unknown]
  - Muscle spasms [Unknown]
  - Hyperlipidaemia [Unknown]
  - Pyrexia [Unknown]
  - Asthma [Unknown]
  - Asthenia [Unknown]
  - Hot flush [Unknown]
  - Drug dose omission [Unknown]
  - Laryngitis [Unknown]

NARRATIVE: CASE EVENT DATE: 20050705
